FAERS Safety Report 7995838-8 (Version None)
Quarter: 2011Q4

REPORT INFORMATION
  Report Type: 
  Country: None (occurrence: None)
  Receive Date: 20111220
  Receipt Date: 20111209
  Transmission Date: 20120403
  Serious: Yes (Hospitalization)
  Sender: FDA-Public Use
  Company Number: US-NOVOPROD-341454

PATIENT

DRUGS (2)
  1. LEVEMIR [Suspect]
     Indication: TYPE 1 DIABETES MELLITUS
     Dosage: 50 U, BID; ONCE IN THE MORNING AND ONCE IN THE EVENING
     Route: 058
     Dates: start: 20090101
  2. NOVOLOG [Suspect]
     Indication: TYPE 1 DIABETES MELLITUS
     Dosage: 12 U, BID; BEFORE LUNCH AND DINNER
     Route: 058
     Dates: start: 20100101

REACTIONS (2)
  - PANCREATITIS ACUTE [None]
  - SYNCOPE [None]
